FAERS Safety Report 6215108-8 (Version None)
Quarter: 2009Q2

REPORT INFORMATION
  Report Type: 
  Country: None (occurrence: None)
  Receive Date: 20090604
  Receipt Date: 20090524
  Transmission Date: 20091009
  Serious: Yes (Other)
  Sender: FDA-Public Use
  Company Number: US-PFIZER INC-2009184297

PATIENT

DRUGS (1)
  1. GENOTROPIN [Suspect]
     Dosage: UNK
     Dates: start: 20060101

REACTIONS (2)
  - PITUITARY TUMOUR [None]
  - THYROID NEOPLASM [None]
